FAERS Safety Report 5333350-5 (Version None)
Quarter: 2007Q2

REPORT INFORMATION
  Report Type: 
  Country: None (occurrence: None)
  Receive Date: 20070524
  Receipt Date: 20070515
  Transmission Date: 20071010
  Serious: Yes (Hospitalization)
  Sender: FDA-Public Use
  Company Number: FR-AVENTIS-200711695FR

PATIENT
  Sex: Female

DRUGS (3)
  1. TAXOTERE [Suspect]
     Indication: BREAST CANCER METASTATIC
     Route: 042
  2. INNOHEP                            /01707902/ [Concomitant]
     Indication: PULMONARY EMBOLISM
     Route: 058
  3. METHYLPREDNISOLONE 16MG TAB [Concomitant]
     Indication: PROPHYLAXIS
     Route: 042

REACTIONS (13)
  - ACUTE RESPIRATORY DISTRESS SYNDROME [None]
  - BLOOD PRESSURE SYSTOLIC INCREASED [None]
  - CAPILLARY LEAK SYNDROME [None]
  - CYANOSIS [None]
  - DYSPNOEA [None]
  - FLUID RETENTION [None]
  - HAEMOPTYSIS [None]
  - HEART RATE INCREASED [None]
  - OEDEMA PERIPHERAL [None]
  - OFF LABEL USE [None]
  - OXYGEN SATURATION DECREASED [None]
  - PULMONARY OEDEMA [None]
  - RALES [None]
